FAERS Safety Report 18959160 (Version 2)
Quarter: 2021Q1

REPORT INFORMATION
  Report Type: Spontaneous
  Country: FR (occurrence: FR)
  Receive Date: 20210302
  Receipt Date: 20210330
  Transmission Date: 20210420
  Serious: Yes (Hospitalization)
  Sender: FDA-Public Use
  Company Number: FR-TEVA-2021-FR-1885232

PATIENT
  Age: 85 Year
  Sex: Male

DRUGS (4)
  1. CANRENOATE [Concomitant]
     Active Substance: CANRENOIC ACID
     Indication: CARDIAC FAILURE
     Dosage: 200 MILLIGRAM DAILY;
     Route: 042
  2. HYDROCHLOROTHIAZIDE. [Suspect]
     Active Substance: HYDROCHLOROTHIAZIDE
     Indication: DIURETIC THERAPY
     Dosage: 50 MILLIGRAM DAILY;
     Route: 065
  3. VALSARTAN. [Suspect]
     Active Substance: VALSARTAN
     Indication: CARDIAC FAILURE
     Dosage: 40 MILLIGRAM DAILY;
     Route: 065
  4. BUMETANIDE. [Suspect]
     Active Substance: BUMETANIDE
     Indication: DIURETIC THERAPY
     Dosage: 25 MILLIGRAM DAILY;
     Route: 050

REACTIONS (4)
  - Renal impairment [Recovered/Resolved]
  - Hypotension [Recovered/Resolved]
  - Oliguria [Recovered/Resolved]
  - Drug ineffective [Unknown]
